FAERS Safety Report 13243999 (Version 1)
Quarter: 2017Q1

REPORT INFORMATION
  Report Type: Spontaneous
  Country: US (occurrence: US)
  Receive Date: 20170216
  Receipt Date: 20170216
  Transmission Date: 20170428
  Serious: No
  Sender: FDA-Public Use
  Company Number: US-RELYPSA-RLY2017000276

PATIENT
  Age: 41 Year
  Sex: Female

DRUGS (19)
  1. ATROVENT [Concomitant]
     Active Substance: IPRATROPIUM BROMIDE
     Indication: ASTHMA
  2. ALBUTEROL                          /00139501/ [Concomitant]
     Active Substance: ALBUTEROL
  3. LYRICA [Concomitant]
     Active Substance: PREGABALIN
  4. PROMETHAZINE [Concomitant]
     Active Substance: PROMETHAZINE\PROMETHAZINE HYDROCHLORIDE
  5. VENTOLIN [Concomitant]
     Active Substance: ALBUTEROL SULFATE
  6. CLONIDINE. [Concomitant]
     Active Substance: CLONIDINE
     Indication: BLOOD PRESSURE ABNORMAL
  7. FAMOTIDINE. [Concomitant]
     Active Substance: FAMOTIDINE
  8. RENVELA [Concomitant]
     Active Substance: SEVELAMER CARBONATE
  9. WELLBUTRIN [Concomitant]
     Active Substance: BUPROPION HYDROCHLORIDE
  10. VELTASSA [Suspect]
     Active Substance: PATIROMER
     Indication: HYPERKALAEMIA
     Dosage: 8.4 G, QD
     Route: 048
     Dates: start: 2016
  11. FLONASE                            /00908302/ [Concomitant]
     Active Substance: MOMETASONE FUROATE
  12. MEDROXYPROGESTERONE [Concomitant]
     Active Substance: MEDROXYPROGESTERONE
  13. SPIRIVA [Concomitant]
     Active Substance: TIOTROPIUM BROMIDE MONOHYDRATE
  14. PRAVASTATIN. [Concomitant]
     Active Substance: PRAVASTATIN
  15. SYMBICORT [Concomitant]
     Active Substance: BUDESONIDE\FORMOTEROL FUMARATE DIHYDRATE
  16. HYDROCODONE BITARTRATE AND ACETAMINOPHEN [Concomitant]
     Active Substance: ACETAMINOPHEN\HYDROCODONE BITARTRATE
  17. NITROGLYCERINE [Concomitant]
     Active Substance: NITROGLYCERIN
  18. RANITIDINE. [Concomitant]
     Active Substance: RANITIDINE
  19. TIZANIDINE. [Concomitant]
     Active Substance: TIZANIDINE

REACTIONS (1)
  - Blood potassium increased [Not Recovered/Not Resolved]

NARRATIVE: CASE EVENT DATE: 20170111
